FAERS Safety Report 7206233-3 (Version None)
Quarter: 2010Q4

REPORT INFORMATION
  Report Type: 
  Country: None (occurrence: None)
  Receive Date: 20101228
  Receipt Date: 20101228
  Transmission Date: 20110411
  Serious: Yes (Other)
  Sender: FDA-Public Use
  Company Number: None

PATIENT
  Age: 26 Year
  Sex: Male
  Weight: 79.3795 kg

DRUGS (2)
  1. OXYCONTIN [Suspect]
     Indication: INTERVERTEBRAL DISC DEGENERATION
     Dosage: 180 MONTHLY PO
     Route: 048
     Dates: start: 20101106, end: 20101226
  2. OXYCONTIN [Suspect]
     Indication: SCOLIOSIS
     Dosage: 180 MONTHLY PO
     Route: 048
     Dates: start: 20101106, end: 20101226

REACTIONS (6)
  - COUGH [None]
  - DRUG INEFFECTIVE [None]
  - HEADACHE [None]
  - NAUSEA [None]
  - PRODUCT FORMULATION ISSUE [None]
  - PRODUCT QUALITY ISSUE [None]
